FAERS Safety Report 10569796 (Version 2)
Quarter: 2015Q1

REPORT INFORMATION
  Report Type: Spontaneous
  Country: US (occurrence: US)
  Receive Date: 20141107
  Receipt Date: 20150119
  Transmission Date: 20150720
  Serious: Yes (Hospitalization)
  Sender: FDA-Public Use
  Company Number: US-ELI_LILLY_AND_COMPANY-US201410011896

PATIENT
  Age: 50 Year
  Sex: Male

DRUGS (1)
  1. OLANZAPINE. [Suspect]
     Active Substance: OLANZAPINE
     Indication: SCHIZOPHRENIA, PARANOID TYPE
     Dosage: 1 DF, UNKNOWN
     Route: 065

REACTIONS (6)
  - Hyperacusis [Unknown]
  - Drug ineffective [Not Recovered/Not Resolved]
  - Oculogyric crisis [Unknown]
  - Psychiatric decompensation [Not Recovered/Not Resolved]
  - Anxiety [Unknown]
  - Schizophrenia [Unknown]

NARRATIVE: CASE EVENT DATE: 2013
